FAERS Safety Report 4534429-8 (Version None)
Quarter: 2004Q4

REPORT INFORMATION
  Report Type: 
  Country: None (occurrence: None)
  Receive Date: 20041214
  Receipt Date: 20041028
  Transmission Date: 20050328
  Serious: No
  Sender: FDA-Public Use
  Company Number: 2004241903US

PATIENT
  Age: 60 Year
  Sex: Female
  Weight: 67.1 kg

DRUGS (7)
  1. BEXTRA [Suspect]
     Indication: ARTHRALGIA
     Dosage: 10 MG, QD, ORAL
     Route: 048
     Dates: start: 20041020, end: 20041023
  2. SYNTHROID [Concomitant]
  3. COUMADIN [Concomitant]
  4. NEURONTIN [Concomitant]
  5. ARIMIDEX [Concomitant]
  6. PREDNISONE [Concomitant]
  7. ACIPHEX [Concomitant]

REACTIONS (3)
  - ABASIA [None]
  - HEADACHE [None]
  - NAUSEA [None]
